FAERS Safety Report 5358916-8 (Version None)
Quarter: 2007Q2

REPORT INFORMATION
  Report Type: 
  Country: None (occurrence: None)
  Receive Date: 20070615
  Receipt Date: 20070607
  Transmission Date: 20071010
  Serious: Yes (Hospitalization)
  Sender: FDA-Public Use
  Company Number: B0473505A

PATIENT
  Age: 39 Year
  Sex: Female
  Weight: 63.6 kg

DRUGS (2)
  1. LAPATINIB [Suspect]
     Dosage: 1250MGM2 PER DAY
     Route: 048
     Dates: start: 20070403
  2. CAPECITABINE [Suspect]
     Dosage: 2000MGM2 PER DAY
     Route: 048
     Dates: start: 20070403

REACTIONS (5)
  - ATRIAL FLUTTER [None]
  - DYSPNOEA [None]
  - LEFT VENTRICULAR DYSFUNCTION [None]
  - PALPITATIONS [None]
  - PERICARDIAL EFFUSION [None]
